FAERS Safety Report 4349378-8 (Version None)
Quarter: 2004Q2

REPORT INFORMATION
  Report Type: 
  Country: None (occurrence: None)
  Receive Date: 20040428
  Receipt Date: 20020314
  Transmission Date: 20050107
  Serious: Yes (Hospitalization)
  Sender: FDA-Public Use
  Company Number: US-BRISTOL-MYERS SQUIBB COMPANY-11771904

PATIENT
  Age: 40 Year
  Sex: Male

DRUGS (10)
  1. BMS224818 [Concomitant]
     Dosage: MORE INTENSIVE ARM REALLOCATION DATE:  12-APR-2002
     Route: 042
     Dates: start: 20011026, end: 20020215
  2. MYCOPHENOLATE MOFETIL [Suspect]
     Dosage: THERAPY RESTARTED AT A DOSE OF 750 MILLIGRAMS PER DAY ON 03-APR-2002.
     Route: 048
     Dates: start: 20011026
  3. PREDNISONE [Suspect]
     Route: 048
     Dates: start: 20011028
  4. CARVEDILOL [Concomitant]
     Dates: start: 20011116
  5. NIFEDIPINE [Concomitant]
     Dates: start: 20011123
  6. FUROSEMIDE [Concomitant]
     Dates: start: 20011028
  7. ATORVASTATIN [Concomitant]
     Dates: start: 20010314
  8. CLONIDINE HCL [Concomitant]
     Dates: start: 20011123
  9. ACETYLSALICYLSAURE [Concomitant]
     Dates: start: 20011123
  10. LOSARTAN [Concomitant]
     Dates: start: 20011213

REACTIONS (1)
  - CYTOMEGALOVIRUS INFECTION [None]
